FAERS Safety Report 6638898-9 (Version None)
Quarter: 2010Q1

REPORT INFORMATION
  Report Type: 
  Country: None (occurrence: None)
  Receive Date: 20100317
  Receipt Date: 20100303
  Transmission Date: 20100710
  Serious: Yes (Other)
  Sender: FDA-Public Use
  Company Number: PHHY2010FR12529

PATIENT
  Age: 48 Year
  Sex: Male

DRUGS (5)
  1. ZOLEDRONIC ACID [Suspect]
     Indication: HYPERCALCAEMIA
     Dosage: 4 MG
  2. MONOCLONAL ANTIBODIES [Suspect]
     Dosage: 30 MG/KG, UNK
  3. MONOCLONAL ANTIBODIES [Suspect]
     Dosage: 20 MG/KG, UNK
  4. CARBOPLATIN [Concomitant]
  5. PACLITAXEL [Concomitant]
     Dosage: 200 MG/M2, UNK

REACTIONS (8)
  - BLOOD ALBUMIN DECREASED [None]
  - BLOOD URIC ACID DECREASED [None]
  - DISEASE PROGRESSION [None]
  - HYPONATRAEMIA [None]
  - PROTEINURIA [None]
  - RENAL DISORDER [None]
  - RENAL TUBULAR ATROPHY [None]
  - RENAL TUBULAR DISORDER [None]
